FAERS Safety Report 6356373-6 (Version None)
Quarter: 2009Q3

REPORT INFORMATION
  Report Type: 
  Country: None (occurrence: None)
  Receive Date: 20090915
  Receipt Date: 20090902
  Transmission Date: 20100115
  Serious: Yes (Other)
  Sender: FDA-Public Use
  Company Number: US-ELI_LILLY_AND_COMPANY-US200909000900

PATIENT
  Sex: Female

DRUGS (3)
  1. CYMBALTA [Suspect]
     Indication: MAJOR DEPRESSION
     Dosage: 60 MG, DAILY (1/D)
     Dates: start: 20090701
  2. ACTOS [Concomitant]
     Dosage: 1 D/F, UNK
  3. ATENOLOL [Concomitant]
     Dosage: 1 MG, DAILY (1/D)

REACTIONS (1)
  - OCULAR ICTERUS [None]
